FAERS Safety Report 24850959 (Version 1)
Quarter: 2025Q1

REPORT INFORMATION
  Report Type: Spontaneous
  Country: US (occurrence: US)
  Receive Date: 20250116
  Receipt Date: 20250116
  Transmission Date: 20250408
  Serious: No
  Sender: SK LIFE SCIENCE
  Company Number: US-SK LIFE SCIENCE, INC-SKPVG-2024-000556

PATIENT

DRUGS (3)
  1. XCOPRI [Suspect]
     Active Substance: CENOBAMATE
     Indication: Product used for unknown indication
     Route: 065
  2. XCOPRI [Suspect]
     Active Substance: CENOBAMATE
     Dosage: 50 MILLIGRAM, QD FOR 1 WEEK
     Route: 065
     Dates: start: 202403, end: 202403
  3. XCOPRI [Suspect]
     Active Substance: CENOBAMATE
     Dosage: 100 MILLIGRAM, QD
     Route: 065
     Dates: start: 202403

REACTIONS (3)
  - Product dose omission issue [Recovered/Resolved]
  - Product use issue [Unknown]
  - Drug titration error [Unknown]

NARRATIVE: CASE EVENT DATE: 20240301
